FAERS Safety Report 10867067 (Version 1)
Quarter: 2015Q1

REPORT INFORMATION
  Report Type: Spontaneous
  Country: US (occurrence: US)
  Receive Date: 20150225
  Receipt Date: 20150225
  Transmission Date: 20150721
  Serious: Yes (Hospitalization, Other)
  Sender: FDA-Public Use
  Company Number: US-TARO PHARMACEUTICALS U.S.A., INC-2015SUN00485

PATIENT

DRUGS (1)
  1. LAMOTRIGINE. [Suspect]
     Active Substance: LAMOTRIGINE
     Indication: PRODUCT USED FOR UNKNOWN INDICATION
     Dosage: UNK
     Route: 065

REACTIONS (8)
  - Serotonin syndrome [Recovered/Resolved]
  - Myoclonus [Recovered/Resolved]
  - Agitation [Recovered/Resolved]
  - Nausea [None]
  - Hyperhidrosis [Recovered/Resolved]
  - Clonus [Recovered/Resolved]
  - Crying [Recovered/Resolved]
  - Accidental exposure to product by child [Recovered/Resolved]
